FAERS Safety Report 4514210-6 (Version None)
Quarter: 2004Q4

REPORT INFORMATION
  Report Type: 
  Country: None (occurrence: None)
  Receive Date: 20041124
  Receipt Date: 20041104
  Transmission Date: 20050328
  Serious: Yes (Hospitalization)
  Sender: FDA-Public Use
  Company Number: JP_041105096

PATIENT
  Age: 11 Month
  Sex: Female

DRUGS (2)
  1. ONCOVIN [Suspect]
     Indication: NEPHROBLASTOMA
  2. ACTINOMYCIN D [Concomitant]

REACTIONS (5)
  - ANAEMIA [None]
  - HEPATIC FAILURE [None]
  - HEPATOSPLENOMEGALY [None]
  - PLATELET COUNT DECREASED [None]
  - VENOOCCLUSIVE DISEASE [None]
